FAERS Safety Report 8955224 (Version 2)
Quarter: 2013Q1

REPORT INFORMATION
  Report Type: Report from Study
  Country: IT (occurrence: IT)
  Receive Date: 20121207
  Receipt Date: 20130226
  Transmission Date: 20140127
  Serious: Yes (Death, Hospitalization, Other)
  Sender: FDA-Public Use
  Company Number: IT-ASTELLAS-2012EU010669

PATIENT
  Age: 65 Year
  Sex: Male
  Weight: 94 kg

DRUGS (4)
  1. ENZALUTAMIDE [Suspect]
     Indication: PROSTATE CANCER
     Dosage: 160 MG, UID/QD
     Route: 048
     Dates: start: 20121016, end: 20121113
  2. ENANTONE                           /00726901/ [Concomitant]
     Indication: PROSTATE CANCER
     Dosage: 11.25 MG, CYCLIC
     Route: 030
     Dates: start: 201005, end: 201211
  3. LANSOX [Concomitant]
     Indication: GASTROOESOPHAGEAL REFLUX DISEASE
     Dosage: 30 MG, UID/QD
     Route: 048
     Dates: start: 201005, end: 201211
  4. SOLDESAM [Concomitant]
     Dosage: 4 MG, OTHER
     Route: 030
     Dates: start: 20121113, end: 20121123

REACTIONS (4)
  - General physical health deterioration [Fatal]
  - Hepatic function abnormal [Fatal]
  - Renal failure [Unknown]
  - Dystonia [Unknown]
